FAERS Safety Report 24338051 (Version 2)
Quarter: 2025Q1

REPORT INFORMATION
  Report Type: Spontaneous
  Country: AL (occurrence: AL)
  Receive Date: 20240919
  Receipt Date: 20250221
  Transmission Date: 20250409
  Serious: Yes (Hospitalization, Other)
  Sender: RANBAXY
  Company Number: AL-SUN PHARMACEUTICAL INDUSTRIES LTD-2024R1-468007

PATIENT
  Age: 21 Year
  Sex: Female

DRUGS (1)
  1. FERROUS SULFATE [Suspect]
     Active Substance: FERROUS SULFATE
     Indication: Product used for unknown indication
     Route: 048

REACTIONS (2)
  - Angioedema [Unknown]
  - Acute hepatic failure [Unknown]
